FAERS Safety Report 5727135-5 (Version None)
Quarter: 2008Q2

REPORT INFORMATION
  Report Type: 
  Country: None (occurrence: None)
  Receive Date: 20080505
  Receipt Date: 20080207
  Transmission Date: 20081010
  Serious: No
  Sender: FDA-Public Use
  Company Number: US-BAYER-200813740NA

PATIENT
  Age: 65 Year
  Sex: Female
  Weight: 51 kg

DRUGS (1)
  1. MAGNEVIST [Suspect]
     Indication: NUCLEAR MAGNETIC RESONANCE IMAGING
     Dosage: AS USED: 11 ML  UNIT DOSE: 100 ML
     Route: 042
     Dates: start: 20080128, end: 20080128

REACTIONS (1)
  - URTICARIA [None]
